FAERS Safety Report 5630606-3 (Version None)
Quarter: 2008Q1

REPORT INFORMATION
  Report Type: 
  Country: None (occurrence: None)
  Receive Date: 20080219
  Receipt Date: 20080211
  Transmission Date: 20080703
  Serious: Yes (Hospitalization)
  Sender: FDA-Public Use
  Company Number: BR-AVENTIS-200811459GDDC

PATIENT
  Age: 83 Year
  Sex: Male
  Weight: 74 kg

DRUGS (10)
  1. LANTUS [Suspect]
     Dosage: DOSE: 14-16
     Route: 058
     Dates: start: 20030101
  2. OPTIPEN (INSULIN PUMP) [Suspect]
     Route: 058
     Dates: start: 20030101
  3. HUMALOG [Concomitant]
     Indication: DIABETES MELLITUS
     Route: 058
     Dates: start: 20071203
  4. SPIRIVA [Concomitant]
     Indication: EMPHYSEMA
     Dosage: DOSE QUANTITY: 1
     Route: 055
     Dates: start: 20071201
  5. CEBRALAT [Concomitant]
     Dosage: DOSE QUANTITY: 1
     Route: 048
  6. UNKNOWN DRUG [Concomitant]
     Dosage: DOSE QUANTITY: 1
     Route: 048
  7. AAS [Concomitant]
     Dosage: DOSE QUANTITY: 1
     Route: 048
  8. DAFLON                             /00426001/ [Concomitant]
     Dosage: DOSE QUANTITY: 2
     Route: 048
  9. ALDACTONE [Concomitant]
     Route: 048
     Dates: start: 20071201
  10. SERETIDE [Concomitant]
     Indication: EMPHYSEMA
     Dosage: DOSE QUANTITY: 2
     Route: 055
     Dates: start: 20071201

REACTIONS (3)
  - BLOOD GLUCOSE INCREASED [None]
  - HYPOGLYCAEMIA [None]
  - PNEUMONIA [None]
